FAERS Safety Report 6378767-5 (Version None)
Quarter: 2009Q3

REPORT INFORMATION
  Report Type: 
  Country: None (occurrence: None)
  Receive Date: 20090928
  Receipt Date: 20090918
  Transmission Date: 20100115
  Serious: Yes (Other)
  Sender: FDA-Public Use
  Company Number: US-BRISTOL-MYERS SQUIBB COMPANY-14783716

PATIENT
  Age: 60 Year
  Sex: Male

DRUGS (7)
  1. ONGLYZA [Suspect]
     Indication: TYPE 2 DIABETES MELLITUS
     Dates: start: 20090820
  2. AVALIDE [Concomitant]
     Dosage: 150/12.5 MG
  3. ACTOS [Concomitant]
  4. CRESTOR [Concomitant]
  5. LOVAZA [Concomitant]
  6. JANUVIA [Concomitant]
  7. ASPIRIN [Concomitant]

REACTIONS (1)
  - RETINAL DETACHMENT [None]
